FAERS Safety Report 9191734 (Version 3)
Quarter: 2016Q2

REPORT INFORMATION
  Report Type: Report from Study
  Country: US (occurrence: US)
  Receive Date: 20130326
  Receipt Date: 20160624
  Transmission Date: 20160815
  Serious: Yes (Other)
  Sender: FDA-Public Use
  Company Number: US-AMGEN-USASP2013020282

PATIENT
  Age: 69 Year
  Sex: Male

DRUGS (1)
  1. ENBREL [Suspect]
     Active Substance: ETANERCEPT
     Indication: RHEUMATOID ARTHRITIS
     Dosage: 50 MG, WEEKLY
     Route: 065
     Dates: start: 20060501

REACTIONS (8)
  - Ear infection [Not Recovered/Not Resolved]
  - Cholesteatoma [Unknown]
  - Balance disorder [Unknown]
  - Nervous system disorder [Unknown]
  - Arthralgia [Unknown]
  - Joint swelling [Unknown]
  - Cyst [Unknown]
  - Mastoidectomy [Unknown]

NARRATIVE: CASE EVENT DATE: 201207
